FAERS Safety Report 5095468-4 (Version None)
Quarter: 2006Q3

REPORT INFORMATION
  Report Type: 
  Country: None (occurrence: None)
  Receive Date: 20060830
  Receipt Date: 20060816
  Transmission Date: 20061208
  Serious: Yes (Hospitalization, Other)
  Sender: FDA-Public Use
  Company Number: US-2006-005413

PATIENT
  Age: 65 Year
  Sex: Male

DRUGS (1)
  1. BETASERON [Suspect]
     Indication: RELAPSING-REMITTING MULTIPLE SCLEROSIS
     Dosage: 8 MIU, EVERY 2D, SUBCUTANEOUS
     Route: 058
     Dates: start: 19940119, end: 20060116

REACTIONS (5)
  - COLON CANCER [None]
  - DYSPNOEA [None]
  - FULL BLOOD COUNT DECREASED [None]
  - GAIT DISTURBANCE [None]
  - HAEMORRHAGE [None]
